FAERS Safety Report 8536699-8 (Version None)
Quarter: 2012Q3

REPORT INFORMATION
  Report Type: 
  Country: None (occurrence: None)
  Receive Date: 20120718
  Receipt Date: 20120718
  Transmission Date: 20120928
  Serious: Yes (Other)
  Sender: FDA-Public Use
  Company Number: None

PATIENT
  Age: 62 Year
  Sex: Female
  Weight: 65.6 kg

DRUGS (1)
  1. DOXORUBICIN HYDROCHLORIDE [Suspect]
     Indication: B-CELL TYPE ACUTE LEUKAEMIA
     Dates: start: 20111018, end: 20120130

REACTIONS (1)
  - CARDIAC FAILURE CONGESTIVE [None]
